FAERS Safety Report 6544162-9 (Version None)
Quarter: 2010Q1

REPORT INFORMATION
  Report Type: 
  Country: None (occurrence: None)
  Receive Date: 20100120
  Receipt Date: 20090922
  Transmission Date: 20100710
  Serious: No
  Sender: FDA-Public Use
  Company Number: US-ALLERGAN-0911921US

PATIENT
  Sex: Female

DRUGS (6)
  1. PRED FORTE [Suspect]
     Indication: HERPES ZOSTER OPHTHALMIC
     Dosage: 1 GTT, ABOUT EVERY 3 DAYS
     Route: 047
  2. PRED FORTE [Suspect]
     Indication: EYE IRRITATION
     Dosage: 1 GTT, QD FOR 2 OR 3 DAYS
     Route: 047
  3. PRED FORTE [Suspect]
     Dosage: 1 GTT, EVERY 2 OR 3 DAYS
     Route: 047
  4. PRED FORTE [Suspect]
     Dosage: 1 GTT, EVERY 4 OR 5 DAYS
     Route: 047
  5. MURO 128 [Concomitant]
     Indication: CORNEAL OEDEMA
     Dosage: AT NIGHT AND IN THE MORNING
  6. EYE LUBRICANTS [Concomitant]
     Indication: DRY EYE
     Dosage: DURING THE DAY

REACTIONS (4)
  - CORNEAL OEDEMA [None]
  - EYE IRRITATION [None]
  - OCULAR HYPERAEMIA [None]
  - VISION BLURRED [None]
